FAERS Safety Report 5902795-4 (Version None)
Quarter: 2008Q3

REPORT INFORMATION
  Report Type: 
  Country: None (occurrence: None)
  Receive Date: 20080929
  Receipt Date: 20080929
  Transmission Date: 20090109
  Serious: No
  Sender: FDA-Public Use
  Company Number: None

PATIENT
  Sex: Female
  Weight: 102.0593 kg

DRUGS (2)
  1. BUDEPRION XL 300MG [Suspect]
     Indication: ANXIETY
     Dosage: 1 TABLET ONCE DAILY/AN PO
     Route: 048
     Dates: start: 20070101, end: 20080922
  2. BUDEPRION XL 300MG [Suspect]
     Indication: DEPRESSION
     Dosage: 1 TABLET ONCE DAILY/AN PO
     Route: 048
     Dates: start: 20070101, end: 20080922

REACTIONS (9)
  - APATHY [None]
  - DEPRESSION [None]
  - FATIGUE [None]
  - HOT FLUSH [None]
  - HYPERHIDROSIS [None]
  - INSOMNIA [None]
  - NIGHT SWEATS [None]
  - WEIGHT INCREASED [None]
  - YAWNING [None]
